APPROVED DRUG PRODUCT: LOVENOX (PRESERVATIVE FREE)
Active Ingredient: ENOXAPARIN SODIUM
Strength: 90MG/0.6ML (150MG/ML) **Federal Register determination that product was not discontinued or withdrawn for safety or effectiveness reasons**
Dosage Form/Route: INJECTABLE;SUBCUTANEOUS
Application: N020164 | Product #006
Applicant: SANOFI AVENTIS US LLC
Approved: Jun 2, 2000 | RLD: Yes | RS: No | Type: DISCN